FAERS Safety Report 5173306-9 (Version None)
Quarter: 2006Q4

REPORT INFORMATION
  Report Type: 
  Country: None (occurrence: None)
  Receive Date: 20061214
  Receipt Date: 20061204
  Transmission Date: 20070319
  Serious: Yes (Life-Threatening, Disabling)
  Sender: FDA-Public Use
  Company Number: DE-BAYER-200611665BVD

PATIENT
  Age: 47 Year
  Sex: Male
  Weight: 72 kg

DRUGS (1)
  1. TRASYLOL [Suspect]
     Indication: CORONARY ARTERY BYPASS
     Dates: start: 20061117, end: 20061117

REACTIONS (2)
  - ANAPHYLACTIC REACTION [None]
  - VISUAL ACUITY REDUCED [None]
